FAERS Safety Report 14842415 (Version 1)
Quarter: 2018Q2

REPORT INFORMATION
  Report Type: Spontaneous
  Country: US (occurrence: US)
  Receive Date: 20180503
  Receipt Date: 20180503
  Transmission Date: 20180711
  Serious: Yes (Other)
  Sender: FDA-Public Use
  Company Number: US-BAYER-2018-083016

PATIENT
  Age: 21 Year
  Sex: Female

DRUGS (7)
  1. BUVACAINA [Concomitant]
     Indication: EPIDURAL ANAESTHESIA
     Dosage: UNK
  2. ACETYLSALICYLIC ACID({=100 MG) [Suspect]
     Active Substance: ASPIRIN
     Indication: POLYCYTHAEMIA
     Dosage: 81 MG, UNK
  3. OXYGEN. [Concomitant]
     Active Substance: OXYGEN
     Dosage: UNK
  4. FENTANYL. [Concomitant]
     Active Substance: FENTANYL
     Indication: EPIDURAL ANAESTHESIA
     Dosage: UNK
  5. PHENYLEPHRINE [Concomitant]
     Active Substance: PHENYLEPHRINE\PHENYLEPHRINE HYDROCHLORIDE
     Indication: BLOOD PRESSURE SYSTOLIC DECREASED
     Route: 042
  6. AMPICILLIN [Concomitant]
     Active Substance: AMPICILLIN
     Indication: PROPHYLAXIS
     Dosage: UNK
  7. METOPROLOL. [Concomitant]
     Active Substance: METOPROLOL
     Indication: VENTRICULAR TACHYCARDIA
     Dosage: UNK

REACTIONS (8)
  - Foetal heart rate deceleration abnormality [Recovered/Resolved]
  - Foetal growth restriction [None]
  - Caesarean section [Recovered/Resolved]
  - Maternal exposure during pregnancy [None]
  - Off label use [None]
  - Tachycardia [Recovered/Resolved]
  - Vascular resistance systemic decreased [None]
  - Hypotension [Recovered/Resolved]
